FAERS Safety Report 5084887-8 (Version None)
Quarter: 2006Q3

REPORT INFORMATION
  Report Type: 
  Country: None (occurrence: None)
  Receive Date: 20060821
  Receipt Date: 20060808
  Transmission Date: 20061208
  Serious: Yes (Other)
  Sender: FDA-Public Use
  Company Number: AU-NOVOPROD-256135

PATIENT
  Age: 82 Year
  Sex: Male
  Weight: 75 kg

DRUGS (11)
  1. NOVOSEVEN [Suspect]
     Indication: POST PROCEDURAL HAEMORRHAGE
     Dosage: 9.6 MG, SINGLE
     Dates: start: 20051201
  2. BLOOD CELLS, PACKED HUMAN [Concomitant]
     Dosage: 7 U, 24 HRS PRE RFVIIA ADMINISTRATION
  3. BLOOD CELLS, PACKED HUMAN [Concomitant]
     Dosage: 4 U, 24 HRS POST RFVIIA ADMINISTRATION
  4. FRESH FROZEN PLASMA [Concomitant]
     Dosage: 6 U, 24 HRS PRE RFVIIA ADMINISTRATION
  5. CRYOPRECIPITATES [Concomitant]
     Dosage: 10 U, 24 HRS PRE RFVIIA ADMINISTRATION
  6. PLATELETS [Concomitant]
     Dosage: 1 U, 24 HRS PRE RFVIIA ADMINISTRATION
  7. PLATELETS [Concomitant]
     Dosage: 1 U, 24 HRS POST RFVIIA ADMINISTRATION
  8. GELOFUSINE                         /00203801/ [Concomitant]
     Dosage: 2000 ML, 24 HRS PRE RFVIIA ADMINISTRATION
  9. GELOFUSINE                         /00203801/ [Concomitant]
     Dosage: 1000 ML, 24 HRS POST RFVIIA ADMINISTRATION
  10. HEPARIN [Concomitant]
     Dosage: BEFORE RFVIIA DOSE
  11. VITAMIN K                          /00032401/ [Concomitant]
     Dosage: BEFORE RFVIIA DOSE

REACTIONS (5)
  - CEREBRAL INFARCTION [None]
  - CEREBROVASCULAR ACCIDENT [None]
  - RENAL FAILURE ACUTE [None]
  - SEPSIS [None]
  - THROMBOSIS [None]
